FAERS Safety Report 19462652 (Version 1)
Quarter: 2021Q2

REPORT INFORMATION
  Report Type: Spontaneous
  Country: US (occurrence: US)
  Receive Date: 20210625
  Receipt Date: 20210625
  Transmission Date: 20210717
  Serious: No
  Sender: FDA-Public Use
  Company Number: US-ELI_LILLY_AND_COMPANY-US202106012819

PATIENT

DRUGS (2)
  1. EMGALITY [Suspect]
     Active Substance: GALCANEZUMAB-GNLM
     Indication: PRODUCT USED FOR UNKNOWN INDICATION
     Dosage: UNK UNK, UNKNOWN
     Route: 065
     Dates: start: 202101
  2. UBRELVY [Concomitant]
     Active Substance: UBROGEPANT
     Indication: MIGRAINE

REACTIONS (3)
  - Migraine [Unknown]
  - Oral herpes [Unknown]
  - Alopecia [Unknown]

NARRATIVE: CASE EVENT DATE: 202106
